FAERS Safety Report 17295125 (Version 1)
Quarter: 2020Q1

REPORT INFORMATION
  Report Type: Spontaneous
  Country: US (occurrence: US)
  Receive Date: 20200121
  Receipt Date: 20200121
  Transmission Date: 20200409
  Serious: Yes (Death)
  Sender: FDA-Public Use
  Company Number: US-COVIS PHARMA B.V.-2020COV00033

PATIENT
  Age: 19 Year
  Sex: Female

DRUGS (3)
  1. METFORMIN [Suspect]
     Active Substance: METFORMIN HYDROCHLORIDE
     Route: 048
  2. OMEPRAZOLE MAGNESIUM. [Suspect]
     Active Substance: OMEPRAZOLE MAGNESIUM
     Route: 048
  3. METOPROLOL. [Suspect]
     Active Substance: METOPROLOL

REACTIONS (2)
  - Product administration error [Fatal]
  - Toxicity to various agents [Fatal]
